FAERS Safety Report 6044565-5 (Version None)
Quarter: 2009Q1

REPORT INFORMATION
  Report Type: 
  Country: None (occurrence: None)
  Receive Date: 20090120
  Receipt Date: 20081120
  Transmission Date: 20090719
  Serious: Yes (Death, Hospitalization)
  Sender: FDA-Public Use
  Company Number: US-SANOFI-SYNTHELABO-A03200804076

PATIENT
  Age: 60 Year
  Sex: Male

DRUGS (7)
  1. ANGIOMAX [Suspect]
     Indication: DRUG USE FOR UNKNOWN INDICATION
     Dosage: 250/50 MG
     Route: 042
     Dates: start: 20081018
  2. INTEGRILIN [Suspect]
     Indication: DRUG USE FOR UNKNOWN INDICATION
     Dosage: 9.5 ML/ HOUR
     Route: 040
     Dates: start: 20081018
  3. ASPIRIN [Concomitant]
     Indication: DRUG USE FOR UNKNOWN INDICATION
     Route: 048
  4. LISINOPRIL [Concomitant]
     Indication: DRUG USE FOR UNKNOWN INDICATION
     Route: 048
  5. TOPROL-XL [Concomitant]
     Indication: DRUG USE FOR UNKNOWN INDICATION
     Dosage: UNK
     Route: 065
  6. ZOCOR [Concomitant]
     Indication: DRUG USE FOR UNKNOWN INDICATION
     Route: 048
  7. PLAVIX [Suspect]
     Indication: DRUG USE FOR UNKNOWN INDICATION
     Dosage: UNK
     Route: 048
     Dates: start: 20081018

REACTIONS (7)
  - CONFUSIONAL STATE [None]
  - CORONARY ARTERY THROMBOSIS [None]
  - DISSEMINATED INTRAVASCULAR COAGULATION [None]
  - ELECTROMECHANICAL DISSOCIATION [None]
  - HAEMATOMA [None]
  - HYPOTENSION [None]
  - THROMBOCYTOPENIA [None]
